FAERS Safety Report 12010432 (Version 1)
Quarter: 2016Q1

REPORT INFORMATION
  Report Type: Report from Study
  Country: CA (occurrence: CA)
  Receive Date: 20160205
  Receipt Date: 20160205
  Transmission Date: 20160526
  Serious: Yes (Death)
  Sender: FDA-Public Use
  Company Number: CA-ARIAD PHARMACEUTICALS, INC-2016CA006066

PATIENT
  Age: 28 Year
  Sex: Female

DRUGS (1)
  1. ICLUSIG [Suspect]
     Active Substance: PONATINIB
     Indication: CHRONIC MYELOID LEUKAEMIA
     Dosage: UNK
     Route: 048
     Dates: start: 20150917, end: 20151101

REACTIONS (1)
  - Death [Fatal]

NARRATIVE: CASE EVENT DATE: 20151101
